FAERS Safety Report 6236349-X (Version None)
Quarter: 2009Q2

REPORT INFORMATION
  Report Type: 
  Country: None (occurrence: None)
  Receive Date: 20090619
  Receipt Date: 20090611
  Transmission Date: 20091009
  Serious: Yes (Other)
  Sender: FDA-Public Use
  Company Number: US-ASTRAZENECA-2009UW03104

PATIENT
  Age: 586 Month
  Sex: Male
  Weight: 108 kg

DRUGS (1)
  1. SEROQUEL [Suspect]
     Indication: BIPOLAR DISORDER
     Dosage: 300 MG TO 600 MG
     Route: 048
     Dates: start: 20030101

REACTIONS (2)
  - APPENDICITIS PERFORATED [None]
  - DIABETES MELLITUS [None]
